FAERS Safety Report 4957445-0 (Version None)
Quarter: 2006Q1

REPORT INFORMATION
  Report Type: 
  Country: None (occurrence: None)
  Receive Date: 20060327
  Receipt Date: 20060315
  Transmission Date: 20060701
  Serious: Yes (Other)
  Sender: FDA-Public Use
  Company Number: 2006BH006044

PATIENT
  Age: 29 Year
  Sex: Male

DRUGS (1)
  1. LIDOCAINE HYDROCHLORIDE [Suspect]
     Indication: EYELID OPERATION

REACTIONS (8)
  - CATARACT SUBCAPSULAR [None]
  - DRUG ADMINISTRATION ERROR [None]
  - INTRAOCULAR PRESSURE INCREASED [None]
  - RETINAL ARTERY SPASM [None]
  - RETINOGRAM ABNORMAL [None]
  - SCLERAL DISORDER [None]
  - VISUAL ACUITY REDUCED [None]
  - WOUND [None]
